FAERS Safety Report 9677426 (Version 1)
Quarter: 2013Q4

REPORT INFORMATION
  Report Type: Spontaneous
  Country: US (occurrence: US)
  Receive Date: 20131108
  Receipt Date: 20131108
  Transmission Date: 20140711
  Serious: No
  Sender: FDA-Public Use
  Company Number: US-ENDO PHARMACEUTICALS INC.-PERP20120003

PATIENT
  Sex: Female

DRUGS (1)
  1. PERPHENAZINE TABLETS 4MG [Suspect]
     Indication: SCHIZOPHRENIA
     Dosage: 4 MG
     Route: 048
     Dates: start: 2008

REACTIONS (1)
  - Feeling abnormal [Not Recovered/Not Resolved]
